FAERS Safety Report 22167185 (Version 1)
Quarter: 2023Q2

REPORT INFORMATION
  Report Type: Spontaneous
  Country: IT (occurrence: IT)
  Receive Date: 20230403
  Receipt Date: 20230403
  Transmission Date: 20230721
  Serious: Yes (Disabling, Other)
  Sender: FDA-Public Use
  Company Number: IT-MYLANLABS-2023M1034441

PATIENT
  Age: 6 Year
  Sex: Female

DRUGS (10)
  1. METHOTREXATE [Suspect]
     Active Substance: METHOTREXATE
     Indication: Medulloblastoma
     Dosage: UNK, CYCLE, DOSE: 8G/M2
     Route: 065
     Dates: start: 2018
  2. VINORELBINE [Suspect]
     Active Substance: VINORELBINE TARTRATE
     Indication: Medulloblastoma
     Dosage: 20 MILLIGRAM/SQ. METER, CYCLE
     Route: 065
     Dates: start: 2018
  3. VINORELBINE [Suspect]
     Active Substance: VINORELBINE TARTRATE
     Dosage: 20 MILLIGRAM/SQ. METER, BIWEEKLY
     Route: 065
     Dates: start: 2019
  4. VINORELBINE [Suspect]
     Active Substance: VINORELBINE TARTRATE
     Dosage: 20 MILLIGRAM/SQ. METER, Q3W, 20MG/M2 30MIN INFUSION FOR 1 DAY, REPEATED EVERY 3 WEEKS
     Route: 065
     Dates: start: 2019
  5. ETOPOSIDE [Suspect]
     Active Substance: ETOPOSIDE
     Indication: Medulloblastoma
     Dosage: UNK, CYCLE, DOSE: 2.4G/M2
     Route: 065
     Dates: start: 2018
  6. CYCLOPHOSPHAMIDE [Suspect]
     Active Substance: CYCLOPHOSPHAMIDE
     Indication: Medulloblastoma
     Dosage: UNK UNK, CYCLE, DOSE: 4G/M2
     Route: 065
     Dates: start: 2018
  7. CARBOPLATIN [Suspect]
     Active Substance: CARBOPLATIN
     Indication: Medulloblastoma
     Dosage: 800 MILLIGRAM/SQ. METER, CYCLE
     Route: 065
     Dates: start: 2018
  8. THIOTEPA [Suspect]
     Active Substance: THIOTEPA
     Indication: Medulloblastoma
     Dosage: 300 MILLIGRAM/SQ. METER, QD, HIGH DOSE
     Route: 065
     Dates: start: 2018
  9. LOMUSTINE [Suspect]
     Active Substance: LOMUSTINE
     Indication: Medulloblastoma
     Dosage: 80 MILLIGRAM/SQ. METER, 9 WEEK
     Route: 048
     Dates: start: 2019
  10. DEXAMETHASONE [Suspect]
     Active Substance: DEXAMETHASONE
     Indication: Hypophysitis
     Dosage: 4 MILLIGRAM, QD
     Route: 065
     Dates: start: 2019

REACTIONS (4)
  - Leukoencephalopathy [Unknown]
  - Retinopathy [Unknown]
  - Cytomegalovirus infection reactivation [Recovered/Resolved]
  - Blindness [Not Recovered/Not Resolved]
